FAERS Safety Report 19942158 (Version 1)
Quarter: 2021Q4

REPORT INFORMATION
  Report Type: Spontaneous
  Country: US (occurrence: US)
  Receive Date: 20211011
  Receipt Date: 20211011
  Transmission Date: 20220303
  Serious: No
  Sender: FDA-Public Use
  Company Number: US-PFIZER INC-2021433472

PATIENT
  Age: 72 Year
  Sex: Female
  Weight: 68.04 kg

DRUGS (2)
  1. PREMARIN [Suspect]
     Active Substance: ESTROGENS, CONJUGATED
     Dosage: UNKNOWN DOSE SUPPLIED AS A LITTLE AMOUNT APPLY AS NEEDED INSERTED VAGINALLY
     Route: 067
     Dates: start: 2011
  2. TRIMO SAN [Concomitant]
     Active Substance: OXYQUINOLINE SULFATE\SODIUM LAURYL SULFATE
     Dosage: UNK

REACTIONS (2)
  - Vulvovaginal dryness [Not Recovered/Not Resolved]
  - Dyspareunia [Unknown]
